FAERS Safety Report 9631272 (Version 1)
Quarter: 2013Q4

REPORT INFORMATION
  Report Type: Report from Study
  Country: CA (occurrence: CA)
  Receive Date: 20131018
  Receipt Date: 20131018
  Transmission Date: 20140711
  Serious: Yes (Other)
  Sender: FDA-Public Use
  Company Number: CA-JNJFOC-20131007852

PATIENT
  Age: 13 Year
  Sex: Male
  Weight: 53 kg

DRUGS (4)
  1. REMICADE [Suspect]
     Indication: CROHN^S DISEASE
     Dosage: SPRING 2012
     Route: 042
     Dates: start: 2012
  2. PREVACID [Concomitant]
     Indication: CROHN^S DISEASE
     Dosage: UNSURE OF DOSE
     Route: 065
  3. CIPROX [Concomitant]
     Indication: CROHN^S DISEASE
     Dosage: UNSURE OF DOSE
     Route: 065
  4. FLAGYL [Concomitant]
     Indication: CROHN^S DISEASE
     Dosage: UNSURE OF DOSE
     Route: 065

REACTIONS (1)
  - Foot fracture [Unknown]
